FAERS Safety Report 11738479 (Version 1)
Quarter: 2015Q4

REPORT INFORMATION
  Report Type: Spontaneous
  Country: US (occurrence: US)
  Receive Date: 20151110
  Receipt Date: 20151110
  Transmission Date: 20160304
  Serious: No
  Sender: FDA-Public Use
  Company Number: US-ELI_LILLY_AND_COMPANY-US201208001103

PATIENT
  Sex: Female

DRUGS (1)
  1. FORTEO [Suspect]
     Active Substance: TERIPARATIDE
     Indication: OSTEOPOROSIS
     Dosage: 20 UG, QD
     Dates: start: 201201

REACTIONS (12)
  - Abdominal distension [Unknown]
  - Nausea [Unknown]
  - Malaise [Unknown]
  - Oedema peripheral [Unknown]
  - Blood pressure abnormal [Unknown]
  - Heart rate increased [Unknown]
  - Blood calcium abnormal [Unknown]
  - Memory impairment [Unknown]
  - Thyroid function test abnormal [Unknown]
  - Blood test abnormal [Unknown]
  - Thinking abnormal [Unknown]
  - Dizziness [Unknown]
